FAERS Safety Report 14842480 (Version 1)
Quarter: 2018Q2

REPORT INFORMATION
  Report Type: Report from Study
  Country: CO (occurrence: CO)
  Receive Date: 20180503
  Receipt Date: 20180503
  Transmission Date: 20180711
  Serious: Yes (Hospitalization, Other)
  Sender: FDA-Public Use
  Company Number: CO-UCBSA-2018018356

PATIENT
  Age: 46 Year
  Sex: Male
  Weight: 58 kg

DRUGS (6)
  1. LEFLUNOMIDE. [Concomitant]
     Active Substance: LEFLUNOMIDE
     Indication: RHEUMATOID ARTHRITIS
     Dosage: UNK
     Dates: start: 20160719, end: 20180312
  2. PREDNISOLONE. [Concomitant]
     Active Substance: PREDNISOLONE
     Indication: RHEUMATOID ARTHRITIS
     Dosage: UNK
     Dates: start: 20160719, end: 20180312
  3. CERTOLIZUMAB PEGOL [Suspect]
     Active Substance: CERTOLIZUMAB PEGOL
     Indication: RHEUMATOID ARTHRITIS
     Dosage: 400 MG, MONTHLY (QM)
     Route: 058
     Dates: start: 20160719, end: 20180222
  4. SULFASALAZINE. [Concomitant]
     Active Substance: SULFASALAZINE
     Indication: RHEUMATOID ARTHRITIS
     Dosage: UNK
     Dates: start: 20160719, end: 20180312
  5. OMEPRAZOLE. [Concomitant]
     Active Substance: OMEPRAZOLE
     Indication: RHEUMATOID ARTHRITIS
     Dosage: UNK
     Dates: start: 20160719, end: 20180312
  6. ACETAMINOPHEN. [Concomitant]
     Active Substance: ACETAMINOPHEN
     Indication: RHEUMATOID ARTHRITIS
     Dosage: UNK
     Dates: start: 20160719, end: 20180312

REACTIONS (5)
  - Gastric ulcer [Recovering/Resolving]
  - Abdominal pain [Recovering/Resolving]
  - Vomiting [Recovered/Resolved]
  - Intestinal ischaemia [Recovered/Resolved]
  - Mesenteric vein thrombosis [Recovered/Resolved]

NARRATIVE: CASE EVENT DATE: 20180311
